FAERS Safety Report 7961941-1 (Version None)
Quarter: 2011Q4

REPORT INFORMATION
  Report Type: 
  Country: None (occurrence: None)
  Receive Date: 20111207
  Receipt Date: 20111129
  Transmission Date: 20120403
  Serious: Yes (Other)
  Sender: FDA-Public Use
  Company Number: US-ELI_LILLY_AND_COMPANY-US201111000142

PATIENT
  Age: 50 Year
  Sex: Male

DRUGS (4)
  1. EFFIENT [Suspect]
     Dosage: 60 MG, SINGLE
     Route: 042
     Dates: start: 20110901
  2. ASPIRIN [Concomitant]
  3. EFFIENT [Suspect]
     Dosage: 10 MG, QD
     Dates: start: 20110901
  4. EFFIENT [Suspect]
     Indication: STENT PLACEMENT
     Dosage: 10 MG, BID
     Dates: start: 20110901

REACTIONS (4)
  - THROMBOSIS IN DEVICE [None]
  - OVERDOSE [None]
  - CHEST PAIN [None]
  - THERAPEUTIC RESPONSE DECREASED [None]
